FAERS Safety Report 21746712 (Version 1)
Quarter: 2022Q4

REPORT INFORMATION
  Report Type: Spontaneous
  Country: US (occurrence: None)
  Receive Date: 20221216
  Receipt Date: 20221216
  Transmission Date: 20230112
  Serious: Yes (Hospitalization)
  Sender: FDA-Public Use
  Company Number: None

PATIENT
  Age: 52 Year
  Sex: Male

DRUGS (16)
  1. OPSUMIT [Suspect]
     Active Substance: MACITENTAN
     Indication: Pulmonary arterial hypertension
     Dosage: FREQUENCY : DAILY;?
     Route: 048
     Dates: start: 20151119
  2. VELETRI [Concomitant]
     Active Substance: EPOPROSTENOL
  3. METOLAZONE [Concomitant]
     Active Substance: METOLAZONE
  4. SPIRONOLACTONE [Concomitant]
     Active Substance: SPIRONOLACTONE
  5. LYRICA [Concomitant]
     Active Substance: PREGABALIN
  6. BUMEX [Concomitant]
     Active Substance: BUMETANIDE
  7. Vittamin B12 [Concomitant]
  8. VITAMIN D3 [Concomitant]
     Active Substance: CHOLECALCIFEROL
  9. VITAMIN B1 [Concomitant]
     Active Substance: THIAMINE HYDROCHLORIDE
  10. LIPITOR [Concomitant]
     Active Substance: ATORVASTATIN CALCIUM
  11. DIGOXIN [Concomitant]
     Active Substance: DIGOXIN
  12. APIXABAN [Concomitant]
     Active Substance: APIXABAN
  13. TIZANIDINE [Concomitant]
     Active Substance: TIZANIDINE
  14. COLCHICINE [Concomitant]
     Active Substance: COLCHICINE
  15. VITAMINS [Concomitant]
     Active Substance: VITAMINS
  16. Omeparzole [Concomitant]

REACTIONS (3)
  - Cardiac failure [None]
  - Cough [None]
  - Acute kidney injury [None]

NARRATIVE: CASE EVENT DATE: 20221115
